FAERS Safety Report 16768549 (Version 1)
Quarter: 2019Q3

REPORT INFORMATION
  Report Type: Spontaneous
  Country: US (occurrence: US)
  Receive Date: 20190903
  Receipt Date: 20190903
  Transmission Date: 20191005
  Serious: Yes (Other)
  Sender: FDA-Public Use
  Company Number: US-THE MENTHOLATUM COMPANY-2073963

PATIENT
  Sex: Female

DRUGS (1)
  1. ROHTO BEAUTY SECRET [Suspect]
     Active Substance: NAPHAZOLINE HYDROCHLORIDE\POLYSORBATE 80

REACTIONS (1)
  - Cyst [Not Recovered/Not Resolved]
